FAERS Safety Report 7239676-2 (Version None)
Quarter: 2011Q1

REPORT INFORMATION
  Report Type: 
  Country: None (occurrence: None)
  Receive Date: 20110122
  Receipt Date: 20101006
  Transmission Date: 20110831
  Serious: No
  Sender: FDA-Public Use
  Company Number: US-ALLERGAN-1012907US

PATIENT
  Age: 67 Year
  Sex: Female

DRUGS (4)
  1. LATISSE [Suspect]
     Indication: GROWTH OF EYELASHES
     Dosage: 1 GTT, QHS
     Dates: start: 20100712
  2. NORMAL SALINE CONTACT SOLUTION [Concomitant]
  3. HORMONE MEDICATION [Concomitant]
  4. HYPERTENSION DRUG [Concomitant]
     Dosage: UNK

REACTIONS (4)
  - EYE DISCHARGE [None]
  - INTRAOCULAR PRESSURE INCREASED [None]
  - EYE PRURITUS [None]
  - OCULAR HYPERAEMIA [None]
